FAERS Safety Report 18544644 (Version 1)
Quarter: 2020Q4

REPORT INFORMATION
  Report Type: Spontaneous
  Country: AR (occurrence: AR)
  Receive Date: 20201125
  Receipt Date: 20201125
  Transmission Date: 20210114
  Serious: Yes (Other)
  Sender: FDA-Public Use
  Company Number: AR-PFIZER INC-2020464720

PATIENT
  Age: 45 Year
  Sex: Female

DRUGS (5)
  1. XELJANZ XR [Suspect]
     Active Substance: TOFACITINIB CITRATE
     Indication: RHEUMATOID ARTHRITIS
     Dosage: 11 MG, DAILY
     Dates: start: 20200706
  2. FOLIC ACID. [Concomitant]
     Active Substance: FOLIC ACID
  3. PREGABALIN. [Concomitant]
     Active Substance: PREGABALIN
     Dosage: 75 MG
  4. ALPLAX [Concomitant]
     Active Substance: ALPRAZOLAM
  5. ARTRAIT 10 [Concomitant]

REACTIONS (9)
  - Gait inability [Unknown]
  - Pain [Unknown]
  - Agitation [Unknown]
  - Muscle spasms [Unknown]
  - Blindness [Unknown]
  - Malaise [Unknown]
  - Fibromyalgia [Unknown]
  - Rheumatoid arthritis [Unknown]
  - Myopia [Unknown]

NARRATIVE: CASE EVENT DATE: 202011
